FAERS Safety Report 5741075-7 (Version None)
Quarter: 2008Q2

REPORT INFORMATION
  Report Type: 
  Country: None (occurrence: None)
  Receive Date: 20080516
  Receipt Date: 20080505
  Transmission Date: 20081010
  Serious: Yes (Other)
  Sender: FDA-Public Use
  Company Number: US-PFIZER INC-2008039663

PATIENT
  Sex: Female
  Weight: 90 kg

DRUGS (6)
  1. LYRICA [Suspect]
     Indication: FIBROMYALGIA
     Route: 048
     Dates: start: 20051201, end: 20071201
  2. BENICAR [Concomitant]
  3. SYNTHROID [Concomitant]
  4. PREVACID [Concomitant]
  5. MOBIC [Concomitant]
  6. TYLENOL [Concomitant]

REACTIONS (4)
  - ABASIA [None]
  - AMNESIA [None]
  - FIBROMYALGIA [None]
  - MYALGIA [None]
